FAERS Safety Report 23349216 (Version 5)
Quarter: 2024Q2

REPORT INFORMATION
  Report Type: Spontaneous
  Country: CO (occurrence: CO)
  Receive Date: 20231229
  Receipt Date: 20240423
  Transmission Date: 20240716
  Serious: Yes (Disabling, Other)
  Sender: FDA-Public Use
  Company Number: CO-GLAXOSMITHKLINE-CO2023AMR132995

PATIENT

DRUGS (1)
  1. MEPOLIZUMAB [Suspect]
     Active Substance: MEPOLIZUMAB
     Dosage: 100 MG, MO, EVERY 30 DAYS

REACTIONS (12)
  - Choking [Not Recovered/Not Resolved]
  - Pneumonia bacterial [Not Recovered/Not Resolved]
  - Disability [Unknown]
  - Respiratory tract congestion [Not Recovered/Not Resolved]
  - Viral infection [Unknown]
  - Vomiting [Unknown]
  - Diarrhoea [Unknown]
  - Fallopian tube neoplasm [Unknown]
  - Drug hypersensitivity [Unknown]
  - Respiratory symptom [Unknown]
  - Asthma [Unknown]
  - Product dose omission issue [Unknown]
